FAERS Safety Report 23287723 (Version 1)
Quarter: 2023Q4

REPORT INFORMATION
  Report Type: Spontaneous
  Country: US (occurrence: None)
  Receive Date: 20231211
  Receipt Date: 20231211
  Transmission Date: 20240109
  Serious: Yes (Other)
  Sender: FDA-Public Use
  Company Number: None

PATIENT
  Age: 81 Year
  Sex: Male
  Weight: 68.49 kg

DRUGS (12)
  1. RANOLAZINE [Suspect]
     Active Substance: RANOLAZINE
  2. ISOSORBID [Concomitant]
  3. CAPTOPRIL [Concomitant]
     Active Substance: CAPTOPRIL
  4. LOPRESSOR [Concomitant]
     Active Substance: METOPROLOL TARTRATE
  5. JARDIANCE [Concomitant]
     Active Substance: EMPAGLIFLOZIN
  6. JANUVIA [Concomitant]
     Active Substance: SITAGLIPTIN PHOSPHATE
  7. GLIMEPIRIDE [Concomitant]
     Active Substance: GLIMEPIRIDE
  8. LIPITOR [Concomitant]
     Active Substance: ATORVASTATIN CALCIUM
  9. ZOCOR [Concomitant]
     Active Substance: SIMVASTATIN
  10. VITAMINS [Concomitant]
     Active Substance: VITAMINS
  11. OSTEO-BIFLEX [Concomitant]
  12. IRON [Concomitant]
     Active Substance: IRON

REACTIONS (6)
  - Dysarthria [None]
  - Muscle rigidity [None]
  - Tremor [None]
  - Gait disturbance [None]
  - Fall [None]
  - Therapy cessation [None]

NARRATIVE: CASE EVENT DATE: 20230824
